FAERS Safety Report 20939978 (Version 2)
Quarter: 2022Q2

REPORT INFORMATION
  Report Type: Spontaneous
  Country: JP (occurrence: JP)
  Receive Date: 20220609
  Receipt Date: 20220620
  Transmission Date: 20220721
  Serious: Yes (Other)
  Sender: FDA-Public Use
  Company Number: JP-SA-2022SA211631

PATIENT
  Age: 61 Year
  Sex: Female

DRUGS (3)
  1. DOCETAXEL [Suspect]
     Active Substance: DOCETAXEL
     Indication: Oesophageal squamous cell carcinoma stage III
     Dosage: 70 MG/M3, Q4W
     Route: 041
  2. FLUOROURACIL [Concomitant]
     Active Substance: FLUOROURACIL
     Indication: Oesophageal squamous cell carcinoma stage III
     Dosage: 750 MG/M3, Q4W
     Route: 065
  3. CISPLATIN [Concomitant]
     Active Substance: CISPLATIN
     Indication: Oesophageal squamous cell carcinoma stage III
     Dosage: 70 MG/M3, Q4W
     Route: 065

REACTIONS (3)
  - Cardiac tamponade [Unknown]
  - Febrile neutropenia [Unknown]
  - Oedema peripheral [Unknown]
